FAERS Safety Report 18842496 (Version 2)
Quarter: 2021Q1

REPORT INFORMATION
  Report Type: Spontaneous
  Country: AU (occurrence: AU)
  Receive Date: 20210204
  Receipt Date: 20210217
  Transmission Date: 20210419
  Serious: Yes (Death, Other)
  Sender: FDA-Public Use
  Company Number: AU-UCBSA-2021003055

PATIENT
  Age: 35 Year
  Sex: Male

DRUGS (14)
  1. KEPPRA [Suspect]
     Active Substance: LEVETIRACETAM
     Indication: OFF LABEL USE
  2. CLOPINE [Suspect]
     Active Substance: CLOZAPINE
     Dosage: 500 MILLIGRAM, ONCE DAILY (QD)
     Dates: start: 200408
  3. HYOSCINE [Suspect]
     Active Substance: SCOPOLAMINE
     Indication: MENTAL DISORDER
     Dosage: UNK
  4. CLONAZEPAM. [Suspect]
     Active Substance: CLONAZEPAM
     Indication: MENTAL DISORDER
  5. CLOPINE [Suspect]
     Active Substance: CLOZAPINE
     Dosage: 500 MILLIGRAM, ONCE DAILY (QD)
     Dates: start: 201103, end: 201110
  6. KEPPRA [Suspect]
     Active Substance: LEVETIRACETAM
     Indication: MENTAL DISORDER
     Dosage: UNK
  7. LITHIUM CARBONATE. [Suspect]
     Active Substance: LITHIUM CARBONATE
     Indication: MENTAL DISORDER
     Dosage: UNK
  8. PERINDOPRIL [Suspect]
     Active Substance: PERINDOPRIL
     Indication: MENTAL DISORDER
     Dosage: UNK
  9. CLOPINE [Suspect]
     Active Substance: CLOZAPINE
     Indication: MENTAL DISORDER
     Dosage: 25 MILLIGRAM, ONCE DAILY (QD)
     Dates: start: 2002
  10. CLOPINE [Suspect]
     Active Substance: CLOZAPINE
     Dosage: 600 MILLIGRAM, ONCE DAILY (QD)
     Dates: start: 2007
  11. CLOPINE [Suspect]
     Active Substance: CLOZAPINE
     Dosage: 600 MILLIGRAM, ONCE DAILY (QD)
     Dates: start: 2010
  12. CLOPINE [Suspect]
     Active Substance: CLOZAPINE
     Dosage: UNK
     Dates: start: 20130527, end: 20140424
  13. THYROXINE [Suspect]
     Active Substance: LEVOTHYROXINE
     Indication: MENTAL DISORDER
     Dosage: UNK
  14. ATROPINE. [Suspect]
     Active Substance: ATROPINE
     Indication: PRODUCT USED FOR UNKNOWN INDICATION
     Dosage: UNK

REACTIONS (4)
  - Off label use [Unknown]
  - Agranulocytosis [Unknown]
  - Gastrointestinal hypomotility [Fatal]
  - Myocarditis [Unknown]
